FAERS Safety Report 5990839-3 (Version None)
Quarter: 2008Q4

REPORT INFORMATION
  Report Type: 
  Country: None (occurrence: None)
  Receive Date: 20081202
  Receipt Date: 20071030
  Transmission Date: 20090506
  Serious: Yes (Disabling, Other)
  Sender: FDA-Public Use
  Company Number: WAES 0710USA06249

PATIENT
  Age: 57 Year
  Sex: Female
  Weight: 53.0709 kg

DRUGS (6)
  1. FOSAMAX [Suspect]
     Indication: OSTEOPENIA
     Dosage: 70 MG/WKY/PO
     Route: 047
     Dates: start: 20050318, end: 20070201
  2. FOSAMAX [Suspect]
     Indication: OSTEOPOROSIS
     Dosage: 70 MG/WKY/PO
     Route: 047
     Dates: start: 20050318, end: 20070201
  3. LEXAPRO [Concomitant]
  4. NEURONTIN [Concomitant]
  5. CALCIUM (UNSPECIFIED) [Concomitant]
  6. TRAZODONE HCL [Concomitant]

REACTIONS (14)
  - ADENOMA BENIGN [None]
  - ANXIETY [None]
  - BRONCHITIS [None]
  - COLONIC POLYP [None]
  - CONCUSSION [None]
  - DEPRESSION [None]
  - FALL [None]
  - OSTEOMYELITIS [None]
  - OSTEONECROSIS [None]
  - PAIN [None]
  - TRAUMATIC BRAIN INJURY [None]
  - TRIGEMINAL NEURALGIA [None]
  - UPPER RESPIRATORY TRACT INFECTION [None]
  - VISION BLURRED [None]
